FAERS Safety Report 24458364 (Version 1)
Quarter: 2024Q4

REPORT INFORMATION
  Report Type: Report from Study
  Country: CA (occurrence: CA)
  Receive Date: 20241018
  Receipt Date: 20241018
  Transmission Date: 20250115
  Serious: No
  Sender: ROCHE
  Company Number: CA-ROCHE-3526724

PATIENT
  Sex: Female

DRUGS (11)
  1. RITUXAN [Suspect]
     Active Substance: RITUXIMAB
     Indication: Rheumatoid arthritis
     Route: 041
     Dates: start: 20190110
  2. METHOTREXATE [Concomitant]
     Active Substance: METHOTREXATE
  3. BENADRYL [Concomitant]
     Active Substance: DIPHENHYDRAMINE HYDROCHLORIDE
  4. ESTROGEL [Concomitant]
     Active Substance: ESTRADIOL
  5. FOLIC ACID [Concomitant]
     Active Substance: FOLIC ACID
  6. OZEMPIC [Concomitant]
     Active Substance: SEMAGLUTIDE
  7. PROGESTERONE [Concomitant]
     Active Substance: PROGESTERONE
     Indication: Menopause
  8. RAMIPRIL [Concomitant]
     Active Substance: RAMIPRIL
  9. SOLU-MEDROL [Concomitant]
     Active Substance: METHYLPREDNISOLONE SODIUM SUCCINATE
     Route: 042
  10. SULFASALAZINE [Concomitant]
     Active Substance: SULFASALAZINE
  11. TYLENOL [Concomitant]
     Active Substance: ACETAMINOPHEN
     Route: 048
     Dates: start: 20190110

REACTIONS (1)
  - Tooth disorder [Unknown]
